FAERS Safety Report 5991245-8 (Version None)
Quarter: 2008Q4

REPORT INFORMATION
  Report Type: 
  Country: None (occurrence: None)
  Receive Date: 20081202
  Receipt Date: 20080108
  Transmission Date: 20090506
  Serious: Yes (Hospitalization, Disabling)
  Sender: FDA-Public Use
  Company Number: WAES 0705USA01340

PATIENT
  Age: 48 Year
  Sex: Female

DRUGS (1)
  1. FOSAMAX [Suspect]
     Indication: OSTEOPOROSIS
     Dosage: 70 MG/PO
     Route: 048
     Dates: start: 19990101, end: 20060301

REACTIONS (12)
  - ANXIETY [None]
  - BARRETT'S OESOPHAGUS [None]
  - BLOOD CHOLESTEROL INCREASED [None]
  - BOWEN'S DISEASE [None]
  - BRONCHITIS [None]
  - DEPRESSION [None]
  - HAEMORRHOIDS [None]
  - INTESTINAL POLYP [None]
  - OSTEONECROSIS [None]
  - PANIC ATTACK [None]
  - RESORPTION BONE INCREASED [None]
  - TEMPOROMANDIBULAR JOINT SYNDROME [None]
